FAERS Safety Report 26176929 (Version 1)
Quarter: 2025Q4

REPORT INFORMATION
  Report Type: Spontaneous
  Country: EU (occurrence: EU)
  Receive Date: 20251218
  Receipt Date: 20251218
  Transmission Date: 20260117
  Serious: Yes (Hospitalization)
  Sender: ROCHE
  Company Number: None

PATIENT
  Age: 64 Year
  Sex: Male

DRUGS (15)
  1. PIRFENIDONE [Suspect]
     Active Substance: PIRFENIDONE
     Indication: Product used for unknown indication
     Dosage: 2 ID?PILL ?LAST DOSE -12-NOV-2025
     Route: 048
     Dates: start: 20251002
  2. SODIUM BICARBONATE [Concomitant]
     Active Substance: SODIUM BICARBONATE
  3. LISINOPRIL [Concomitant]
     Active Substance: LISINOPRIL
     Dosage: 20MG HALF
  4. FUROSEMIDE [Concomitant]
     Active Substance: FUROSEMIDE
     Dosage: 40MG 1+1
  5. BISOPROLOL [Concomitant]
     Active Substance: BISOPROLOL
  6. ALLOPURINOL [Concomitant]
     Active Substance: ALLOPURINOL
  7. PRAVASTATIN [Concomitant]
     Active Substance: PRAVASTATIN
     Dosage: HALF DAILY
  8. PANTOPRAZOLE [Concomitant]
     Active Substance: PANTOPRAZOLE
  9. DAPAGLIFLOZIN [Concomitant]
     Active Substance: DAPAGLIFLOZIN
  10. NINTEDANIB [Concomitant]
     Active Substance: NINTEDANIB
  11. CALCIUM\CHOLECALCIFEROL [Concomitant]
     Active Substance: CALCIUM\CHOLECALCIFEROL
     Dosage: 600MG/1000UI
  12. MAGNESIUM HYDROXIDE [Concomitant]
     Active Substance: MAGNESIUM HYDROXIDE
  13. MYCOPHENOLATE MOFETIL [Concomitant]
     Active Substance: MYCOPHENOLATE MOFETIL
     Dosage: 500MG 2ID
  14. RITUXIMAB [Concomitant]
     Active Substance: RITUXIMAB
  15. PREDNISOLONE [Concomitant]
     Active Substance: PREDNISOLONE

REACTIONS (2)
  - Fatigue [Recovered/Resolved]
  - Dyspnoea [Recovered/Resolved]

NARRATIVE: CASE EVENT DATE: 20251027
